FAERS Safety Report 22072216 (Version 1)
Quarter: 2023Q1

REPORT INFORMATION
  Report Type: Spontaneous
  Country: US (occurrence: US)
  Receive Date: 20230308
  Receipt Date: 20230308
  Transmission Date: 20230418
  Serious: No
  Sender: FDA-Public Use
  Company Number: US-drreddys-SPO/USA/23/0159963

PATIENT
  Age: 69 Year
  Sex: Male

DRUGS (2)
  1. ZENATANE [Suspect]
     Active Substance: ISOTRETINOIN
     Indication: Product used for unknown indication
     Dosage: RMA ISSUE DATE: 07 OCTOBER 2022 04:59:04 PM, 01 NOVEMBER 2022 01:22:45 PM, 13 DECEMBER 2022 01:32:27
  2. ZENATANE [Suspect]
     Active Substance: ISOTRETINOIN
     Dosage: RMA ISSUES DATES: 11 AUGUST 2022 07:49:19 PM, 08 SEPTEMBER 2022 02:43:43 PM

REACTIONS (1)
  - General physical health deterioration [Unknown]
